FAERS Safety Report 4616846-0 (Version None)
Quarter: 2005Q1

REPORT INFORMATION
  Report Type: 
  Country: None (occurrence: None)
  Receive Date: 20050321
  Receipt Date: 20050311
  Transmission Date: 20050727
  Serious: Yes (Hospitalization)
  Sender: FDA-Public Use
  Company Number: FRP05000217

PATIENT
  Age: 37 Year
  Sex: Female
  Weight: 43 kg

DRUGS (5)
  1. ACTONEL [Suspect]
     Indication: OSTEOPOROSIS
     Dosage: 25 MG , 1/WEEK , ORAL
     Route: 048
     Dates: start: 20040602
  2. CLIMASTON                (ESTRADIOL VALERATE, DYDROGESTERONE) [Suspect]
     Dosage: ORAL
     Route: 048
     Dates: start: 20040515
  3. LEVOTHYROXINE SODIUM [Suspect]
     Dosage: ORAL
     Route: 048
     Dates: start: 19890715
  4. HYDROCORTISONE [Suspect]
  5. SAIZEN [Concomitant]

REACTIONS (2)
  - ADRENAL CORTICAL INSUFFICIENCY [None]
  - GASTROENTERITIS [None]
